FAERS Safety Report 21292673 (Version 5)
Quarter: 2024Q1

REPORT INFORMATION
  Report Type: Other
  Country: CA (occurrence: None)
  Receive Date: 20220905
  Receipt Date: 20240304
  Transmission Date: 20240410
  Serious: Yes (Other)
  Sender: FDA-Public Use
  Company Number: CA-ROCHE-3167713

PATIENT
  Age: 38 Year
  Sex: Female

DRUGS (2)
  1. OCREVUS [Suspect]
     Active Substance: OCRELIZUMAB
     Indication: Relapsing-remitting multiple sclerosis
     Dosage: 300 MG AT DAY 0 AND 14, THEN 600 MG EVERY 6 MONTH
     Route: 042
     Dates: start: 20220816
  2. PANTOPRAZOLE [Concomitant]
     Active Substance: PANTOPRAZOLE

REACTIONS (13)
  - Bone abscess [Not Recovered/Not Resolved]
  - Insomnia [Not Recovered/Not Resolved]
  - Tooth abscess [Recovered/Resolved]
  - Pain [Recovered/Resolved]
  - Tongue blistering [Recovered/Resolved]
  - Aphthous ulcer [Recovered/Resolved]
  - Immunosuppression [Not Recovered/Not Resolved]
  - Feeling abnormal [Not Recovered/Not Resolved]
  - Headache [Not Recovered/Not Resolved]
  - Neuralgia [Not Recovered/Not Resolved]
  - Oropharyngeal pain [Not Recovered/Not Resolved]
  - Nail infection [Not Recovered/Not Resolved]
  - Malaise [Unknown]

NARRATIVE: CASE EVENT DATE: 20220823
